FAERS Safety Report 6234180-2 (Version None)
Quarter: 2009Q2

REPORT INFORMATION
  Report Type: 
  Country: None (occurrence: None)
  Receive Date: 20090611
  Receipt Date: 20080703
  Transmission Date: 20091009
  Serious: Yes (Other)
  Sender: FDA-Public Use
  Company Number: WAES 0807USA00836

PATIENT
  Age: 65 Year
  Sex: Female

DRUGS (1)
  1. FOSAMAX PLUS D [Suspect]
     Indication: OSTEOPENIA
     Dosage: 70 MG/2800 IU/WKY/PO
     Route: 048
     Dates: start: 20020101, end: 20080401

REACTIONS (3)
  - CONJUNCTIVITIS [None]
  - IRIDOCYCLITIS [None]
  - IRITIS [None]
